FAERS Safety Report 8059724-X (Version None)
Quarter: 2012Q1

REPORT INFORMATION
  Report Type: 
  Country: None (occurrence: None)
  Receive Date: 20120119
  Receipt Date: 20120119
  Transmission Date: 20120608
  Serious: Yes (Hospitalization)
  Sender: FDA-Public Use
  Company Number: None

PATIENT
  Age: 47 Year
  Sex: Female
  Weight: 86.3 kg

DRUGS (5)
  1. PLAVIX [Suspect]
     Indication: MYOCARDIAL INFARCTION
     Dosage: 75MG DAILY PO RECENT
     Route: 048
  2. LIPITOR [Concomitant]
  3. ENALAPRIL MALEATE AND HYDROCHLOROTHIAZIDE [Concomitant]
  4. TRAMADOL HCL [Concomitant]
  5. APAP W/ CODEINE [Concomitant]

REACTIONS (1)
  - EPISTAXIS [None]
